FAERS Safety Report 7765877-0 (Version None)
Quarter: 2011Q3

REPORT INFORMATION
  Report Type: 
  Country: None (occurrence: None)
  Receive Date: 20110921
  Receipt Date: 20110909
  Transmission Date: 20111222
  Serious: Yes (Hospitalization)
  Sender: FDA-Public Use
  Company Number: US-ELI_LILLY_AND_COMPANY-US201108002507

PATIENT
  Sex: Male
  Weight: 86.168 kg

DRUGS (10)
  1. COLACE [Concomitant]
     Dosage: 100 MG, BID
     Route: 048
  2. ATIVAN [Concomitant]
     Indication: AGITATION
     Dosage: 1 MG, PRN
     Route: 048
     Dates: end: 20110908
  3. ZYPREXA ZYDIS [Suspect]
     Dosage: 30 MG, QD
     Route: 048
     Dates: start: 20110706, end: 20110903
  4. ASCORBIC ACID [Concomitant]
     Dosage: 500 MG, QD
     Route: 048
  5. MULTI-VITAMIN [Concomitant]
     Dosage: UNK, QD
     Route: 048
  6. PROTONIX [Concomitant]
     Dosage: 40 MG, BID
     Route: 048
  7. ZYPREXA ZYDIS [Suspect]
     Dosage: 10 MG, QD
     Route: 048
     Dates: start: 20110908
  8. HYDROXYZINE HYDROCHLORIDE [Concomitant]
     Dosage: 50 MG, PRN
     Route: 048
  9. ZYPREXA [Suspect]
     Indication: SCHIZOPHRENIA, CATATONIC TYPE
     Dosage: 30 MG, QD
     Dates: start: 20110601, end: 20110622
  10. ZYPREXA ZYDIS [Suspect]
     Dosage: 20 MG, QD
     Route: 048
     Dates: start: 20110904, end: 20110908

REACTIONS (5)
  - ALANINE AMINOTRANSFERASE INCREASED [None]
  - ASPARTATE AMINOTRANSFERASE INCREASED [None]
  - DRUG DOSE OMISSION [None]
  - SCHIZOPHRENIA [None]
  - OVERDOSE [None]
